FAERS Safety Report 4533667-8 (Version None)
Quarter: 2004Q4

REPORT INFORMATION
  Report Type: 
  Country: None (occurrence: None)
  Receive Date: 20041210
  Receipt Date: 20041011
  Transmission Date: 20050328
  Serious: No
  Sender: FDA-Public Use
  Company Number: 2004-00620

PATIENT
  Age: 61 Year
  Sex: Male
  Weight: 83 kg

DRUGS (5)
  1. VELCADE [Suspect]
     Indication: MULTIPLE MYELOMA
     Dosage: 1.30 MG/M2 ; 1.00 MG/M2  : IV BOLUS
     Route: 040
     Dates: start: 20040701, end: 20040801
  2. VELCADE [Suspect]
     Indication: MULTIPLE MYELOMA
     Dosage: 1.30 MG/M2 ; 1.00 MG/M2  : IV BOLUS
     Route: 040
     Dates: start: 20040801
  3. ENALAPRIL (ENALAPRIL) [Concomitant]
  4. CORTEF [Concomitant]
  5. REGLAN [Concomitant]

REACTIONS (4)
  - DECREASED APPETITE [None]
  - NAUSEA [None]
  - PAIN IN EXTREMITY [None]
  - PYREXIA [None]
